FAERS Safety Report 8146534-8 (Version None)
Quarter: 2012Q1

REPORT INFORMATION
  Report Type: 
  Country: None (occurrence: None)
  Receive Date: 20120217
  Receipt Date: 20111111
  Transmission Date: 20120608
  Serious: No
  Sender: FDA-Public Use
  Company Number: US-ABBOTT-11P-163-0873596-00

PATIENT
  Sex: Male
  Weight: 94.886 kg

DRUGS (4)
  1. LISINOPRIL [Concomitant]
     Indication: PRODUCT USED FOR UNKNOWN INDICATION
     Route: 048
  2. SIMCOR [Suspect]
     Indication: BLOOD CHOLESTEROL INCREASED
     Dosage: AT BEDTIME
     Route: 048
     Dates: start: 20111028
  3. ASPIRIN [Concomitant]
     Indication: PRODUCT USED FOR UNKNOWN INDICATION
     Dosage: 30 MINUTES PRIOR TO SIMCOR DOSE
     Route: 048
  4. BUPROPION HCL [Concomitant]
     Indication: SMOKING CESSATION THERAPY
     Route: 048

REACTIONS (2)
  - FEELING HOT [None]
  - FLUSHING [None]
